FAERS Safety Report 21535902 (Version 1)
Quarter: 2022Q4

REPORT INFORMATION
  Report Type: Spontaneous
  Country: US (occurrence: None)
  Receive Date: 20221031
  Receipt Date: 20221031
  Transmission Date: 20230113
  Serious: Yes (Death, Hospitalization)
  Sender: FDA-Public Use
  Company Number: None

PATIENT

DRUGS (1)
  1. APIXABAN [Suspect]
     Active Substance: APIXABAN

REACTIONS (4)
  - Cerebrovascular accident [None]
  - Acute respiratory failure [None]
  - Hypertensive emergency [None]
  - Haemorrhagic stroke [None]

NARRATIVE: CASE EVENT DATE: 20220214
